FAERS Safety Report 7284041-5 (Version None)
Quarter: 2011Q1

REPORT INFORMATION
  Report Type: 
  Country: None (occurrence: None)
  Receive Date: 20110209
  Receipt Date: 20110128
  Transmission Date: 20110831
  Serious: Yes (Hospitalization)
  Sender: FDA-Public Use
  Company Number: US-ELI_LILLY_AND_COMPANY-US201011000882

PATIENT
  Sex: Male
  Weight: 84.354 kg

DRUGS (8)
  1. HUMALOG [Suspect]
     Dosage: 6 U, OTHER
     Dates: start: 20100102
  2. LANTUS [Concomitant]
     Dosage: UNK, EACH EVENING
  3. HUMALOG [Suspect]
     Dosage: 15 U, EACH EVENING
     Route: 058
     Dates: start: 20100616
  4. ZETIA [Concomitant]
  5. HUMALOG [Suspect]
     Indication: DIABETES MELLITUS
     Dosage: 6 U, EACH MORNING
     Dates: start: 20100102
  6. CRESTOR [Concomitant]
  7. LISINOPRIL AND HYDROCHLOROTHIAZIDE [Concomitant]
  8. METFORMIN [Concomitant]

REACTIONS (1)
  - CARDIAC OPERATION [None]
